FAERS Safety Report 6472986-5 (Version None)
Quarter: 2009Q4

REPORT INFORMATION
  Report Type: 
  Country: None (occurrence: None)
  Receive Date: 20091204
  Receipt Date: 20091124
  Transmission Date: 20100525
  Serious: Yes (Hospitalization, Other)
  Sender: FDA-Public Use
  Company Number: US-BIOGENIDEC-2009BI031522

PATIENT
  Age: 55 Year
  Sex: Female

DRUGS (7)
  1. TYSABRI [Suspect]
     Indication: MULTIPLE SCLEROSIS
     Route: 042
     Dates: start: 20080201
  2. KEPPRA [Concomitant]
     Indication: CONVULSION
  3. LAMICTAL [Concomitant]
  4. TOPAMAX [Concomitant]
     Indication: HEADACHE
  5. LYRICA [Concomitant]
  6. TRAZODONE HCL [Concomitant]
     Indication: POOR QUALITY SLEEP
  7. AMBIEN [Concomitant]
     Indication: POOR QUALITY SLEEP

REACTIONS (4)
  - ANGINA PECTORIS [None]
  - CARPAL TUNNEL SYNDROME [None]
  - CONVULSION [None]
  - NEUROPATHY PERIPHERAL [None]
